FAERS Safety Report 9129920 (Version 1)
Quarter: 2013Q1

REPORT INFORMATION
  Report Type: Spontaneous
  Country: US (occurrence: US)
  Receive Date: 20130228
  Receipt Date: 20130228
  Transmission Date: 20140127
  Serious: Yes (Other)
  Sender: FDA-Public Use
  Company Number: US-ELI_LILLY_AND_COMPANY-US201302008303

PATIENT
  Sex: Female

DRUGS (2)
  1. FORTEO [Suspect]
     Indication: OSTEOPOROSIS
     Dosage: 20 UG, QD
     Dates: start: 201203
  2. FORTEO [Suspect]
     Dosage: 20 UG, QD

REACTIONS (4)
  - Arthralgia [Not Recovered/Not Resolved]
  - Meniscus injury [Unknown]
  - Scar [Unknown]
  - Arthritis [Unknown]
